FAERS Safety Report 6683101-7 (Version None)
Quarter: 2010Q2

REPORT INFORMATION
  Report Type: 
  Country: None (occurrence: None)
  Receive Date: 20100415
  Receipt Date: 20100412
  Transmission Date: 20101027
  Serious: Yes (Hospitalization, Other)
  Sender: FDA-Public Use
  Company Number: PHHY2010BR22624

PATIENT
  Age: 32 Year
  Sex: Female

DRUGS (1)
  1. PARLODEL [Suspect]
     Indication: BLOOD PROLACTIN INCREASED
     Dosage: 5 MG (2 CAPSULES DAILY)
     Route: 048

REACTIONS (2)
  - BLOOD PROLACTIN INCREASED [None]
  - TUMOUR EXCISION [None]
